FAERS Safety Report 9801898 (Version 2)
Quarter: 2014Q1

REPORT INFORMATION
  Report Type: Spontaneous
  Country: None (occurrence: US)
  Receive Date: 20140107
  Receipt Date: 20140107
  Transmission Date: 20141002
  Serious: No
  Sender: FDA-Public Use
  Company Number: US-ALLERGAN-1312732US

PATIENT
  Age: 20 Year
  Sex: Female

DRUGS (2)
  1. ACZONE [Suspect]
     Indication: PRODUCT USED FOR UNKNOWN INDICATION
     Dosage: UNK UNK, QD
     Route: 061
     Dates: start: 2013
  2. ACZONE [Suspect]
     Dosage: UNK, BID

REACTIONS (3)
  - Lip swelling [Recovered/Resolved]
  - Inappropriate schedule of drug administration [Unknown]
  - Swelling face [Recovered/Resolved]
